FAERS Safety Report 16872130 (Version 1)
Quarter: 2019Q4

REPORT INFORMATION
  Report Type: Spontaneous
  Country: US (occurrence: US)
  Receive Date: 20191001
  Receipt Date: 20191001
  Transmission Date: 20200122
  Serious: No
  Sender: FDA-Public Use
  Company Number: None

PATIENT
  Age: 52 Year
  Sex: Female
  Weight: 106.65 kg

DRUGS (1)
  1. LEVOFLOXACIN. [Suspect]
     Active Substance: LEVOFLOXACIN
     Indication: DIVERTICULITIS
     Dosage: ?          QUANTITY:1 TABLET(S);?
     Route: 048
     Dates: start: 20190722, end: 20190729

REACTIONS (4)
  - Vulvovaginal mycotic infection [None]
  - Pain in extremity [None]
  - Oral fungal infection [None]
  - Plantar fasciitis [None]

NARRATIVE: CASE EVENT DATE: 20190725
